FAERS Safety Report 10340026 (Version 2)
Quarter: 2014Q3

REPORT INFORMATION
  Report Type: Spontaneous
  Country: US (occurrence: None)
  Receive Date: 20140722
  Receipt Date: 20140820
  Transmission Date: 20150326
  Serious: Yes (Hospitalization)
  Sender: FDA-Public Use
  Company Number: HYP201407-000046

PATIENT
  Age: 63 Year
  Sex: Male

DRUGS (1)
  1. RAVICTI [Suspect]
     Active Substance: GLYCEROL PHENYLBUTYRATE
     Indication: AMINO ACID METABOLISM DISORDER
     Dates: start: 201402

REACTIONS (15)
  - Hyponatraemia [None]
  - Oedema [None]
  - Blood glucose increased [None]
  - Cardiac failure congestive [None]
  - Hyperkalaemia [None]
  - Generalised oedema [None]
  - Abdominal pain [None]
  - Dyspnoea [None]
  - Platelet count abnormal [None]
  - Transient ischaemic attack [None]
  - Portal hypertension [None]
  - Oxygen saturation decreased [None]
  - Palpitations [None]
  - Muscular weakness [None]
  - Anaemia [None]

NARRATIVE: CASE EVENT DATE: 201406
